FAERS Safety Report 13559867 (Version 1)
Quarter: 2017Q2

REPORT INFORMATION
  Report Type: Spontaneous
  Country: CH (occurrence: CH)
  Receive Date: 20170518
  Receipt Date: 20170518
  Transmission Date: 20170830
  Serious: Yes (Hospitalization, Congenital Anomaly, Other)
  Sender: FDA-Public Use
  Company Number: CH-PFIZER INC-2017205468

PATIENT
  Sex: Male
  Weight: 3.95 kg

DRUGS (5)
  1. SALAZOPYRIN [Suspect]
     Active Substance: SULFASALAZINE
     Indication: RHEUMATOID ARTHRITIS
     Dosage: 500MG, 2X/DAY
     Route: 064
  2. HUMIRA [Suspect]
     Active Substance: ADALIMUMAB
     Indication: RHEUMATOID ARTHRITIS
     Dosage: 40MG, ONE INJECTION EVERY 2 WEEKS
     Route: 064
     Dates: start: 2016, end: 20160623
  3. PREDNISONE. [Suspect]
     Active Substance: PREDNISONE
     Indication: RHEUMATOID ARTHRITIS
     Dosage: 5 MG, AS NEEDED
     Route: 064
  4. UTROGESTAN [Concomitant]
     Active Substance: PROGESTERONE
     Indication: INFERTILITY
     Dosage: 200MG 1X/DAY
     Route: 064
     Dates: start: 2016, end: 201604
  5. FOLIC ACID. [Concomitant]
     Active Substance: FOLIC ACID
     Indication: PROPHYLAXIS OF NEURAL TUBE DEFECT
     Dosage: 5MG, 1X/DAY
     Route: 064

REACTIONS (4)
  - Maternal exposure during pregnancy [Recovered/Resolved]
  - Pyelocaliectasis [Recovering/Resolving]
  - Hypoglycaemia neonatal [Recovered/Resolved]
  - Hydrocele [Not Recovered/Not Resolved]

NARRATIVE: CASE EVENT DATE: 20160221
